FAERS Safety Report 10558202 (Version 1)
Quarter: 2014Q4

REPORT INFORMATION
  Report Type: Spontaneous
  Country: US (occurrence: US)
  Receive Date: 20141031
  Receipt Date: 20141031
  Transmission Date: 20150529
  Serious: No
  Sender: FDA-Public Use
  Company Number: US-ELI_LILLY_AND_COMPANY-US201410006105

PATIENT
  Age: 65 Year
  Sex: Female

DRUGS (5)
  1. LANTUS [Concomitant]
     Active Substance: INSULIN GLARGINE
     Route: 065
  2. HUMALOG [Suspect]
     Active Substance: INSULIN LISPRO
     Dosage: 14 DF, QD
     Route: 065
     Dates: start: 201408
  3. HUMALOG [Suspect]
     Active Substance: INSULIN LISPRO
     Indication: DIABETES MELLITUS
     Dosage: 13 DF, EACH MORNING
     Route: 065
     Dates: start: 201408
  4. HUMALOG [Suspect]
     Active Substance: INSULIN LISPRO
     Dosage: 10 DF, EACH EVENING
     Route: 065
     Dates: start: 201408
  5. HUMALOG [Suspect]
     Active Substance: INSULIN LISPRO
     Dosage: 16 DF, QD
     Route: 065
     Dates: start: 201408

REACTIONS (1)
  - Dyspnoea [Unknown]
